FAERS Safety Report 5711697-8 (Version None)
Quarter: 2008Q2

REPORT INFORMATION
  Report Type: 
  Country: None (occurrence: None)
  Receive Date: 20080421
  Receipt Date: 20080411
  Transmission Date: 20081010
  Serious: Yes (Other)
  Sender: FDA-Public Use
  Company Number: PHHY2008BR05493

PATIENT

DRUGS (5)
  1. FEMARA [Suspect]
     Indication: BREAST CANCER
     Dosage: 1 DF, QD
     Route: 048
  2. SINVALIP [Concomitant]
     Indication: BLOOD CHOLESTEROL INCREASED
     Dosage: 1 DF, QHS
     Route: 048
  3. PAROXETINE HCL [Concomitant]
     Indication: DEPRESSION
     Dosage: 1 DF, UNK
     Route: 048
  4. CLOSAL [Concomitant]
     Indication: ANXIETY
     Dosage: 1 DF, QD
     Route: 048
  5. RIVOTRIL [Concomitant]
     Indication: ANXIETY
     Dosage: 1 DF, QHS
     Route: 048

REACTIONS (3)
  - BREAST MASS [None]
  - CARPAL TUNNEL SYNDROME [None]
  - FALL [None]
